FAERS Safety Report 20155986 (Version 1)
Quarter: 2021Q4

REPORT INFORMATION
  Report Type: Spontaneous
  Country: FR (occurrence: FR)
  Receive Date: 20211207
  Receipt Date: 20211207
  Transmission Date: 20220304
  Serious: Yes (Hospitalization, Other)
  Sender: FDA-Public Use
  Company Number: FR-SA-SAC20211202000627

PATIENT
  Sex: Male

DRUGS (1)
  1. CEREZYME [Suspect]
     Active Substance: IMIGLUCERASE
     Dosage: 60 IU/KG
     Route: 042

REACTIONS (1)
  - Portal vein thrombosis [Not Recovered/Not Resolved]

NARRATIVE: CASE EVENT DATE: 20211125
